FAERS Safety Report 5843080-9 (Version None)
Quarter: 2008Q3

REPORT INFORMATION
  Report Type: 
  Country: None (occurrence: None)
  Receive Date: 20080812
  Receipt Date: 20080812
  Transmission Date: 20090109
  Serious: Yes (Other)
  Sender: FDA-Public Use
  Company Number: None

PATIENT
  Age: 52 Year
  Sex: Male
  Weight: 99.7913 kg

DRUGS (1)
  1. MS CONTIN [Suspect]
     Indication: PAIN
     Dosage: 15 MG TWICE DAILY PO
     Route: 048
     Dates: start: 20080729, end: 20080811

REACTIONS (2)
  - EJACULATION DISORDER [None]
  - LIBIDO DECREASED [None]
